FAERS Safety Report 11785288 (Version 1)
Quarter: 2015Q4

REPORT INFORMATION
  Report Type: Report from Study
  Country: US (occurrence: US)
  Receive Date: 20151130
  Receipt Date: 20151130
  Transmission Date: 20160305
  Serious: Yes (Disabling)
  Sender: FDA-Public Use
  Company Number: US-ROCHE-GNE280178

PATIENT
  Age: 24 Year
  Sex: Female
  Weight: 85.9 kg

DRUGS (9)
  1. OMALIZUMAB [Suspect]
     Active Substance: OMALIZUMAB
     Indication: ASTHMA
     Dosage: 375 MG, Q2W
     Route: 065
     Dates: start: 20090203, end: 20090724
  2. FERRALET [Concomitant]
     Indication: PREGNANCY
     Dosage: 90 MG, QD
     Route: 048
     Dates: start: 20060812, end: 20091119
  3. BACTRIM DS [Concomitant]
     Active Substance: SULFAMETHOXAZOLE\TRIMETHOPRIM
     Indication: URINARY TRACT INFECTION
     Dosage: UNK
     Route: 048
     Dates: start: 20091022, end: 20091031
  4. LORTAB (UNITED STATES) [Concomitant]
     Indication: PAIN
  5. XANAX [Concomitant]
     Active Substance: ALPRAZOLAM
     Indication: ANXIETY
     Dosage: UNK
     Route: 065
  6. PHENERGAN [Concomitant]
     Active Substance: PROMETHAZINE HYDROCHLORIDE
     Indication: NAUSEA
  7. H1N1 VACCINE [Concomitant]
     Indication: PROPHYLAXIS
     Dosage: 1 UNK, X1
     Route: 030
     Dates: start: 20091109, end: 20091109
  8. AMOXICILLIN. [Concomitant]
     Active Substance: AMOXICILLIN
     Indication: PROPHYLAXIS
  9. AMBIEN [Concomitant]
     Active Substance: ZOLPIDEM TARTRATE
     Indication: INSOMNIA
     Dosage: UNK
     Route: 065

REACTIONS (2)
  - Gestational hypertension [Recovered/Resolved]
  - Exposure during pregnancy [Unknown]

NARRATIVE: CASE EVENT DATE: 20090922
